FAERS Safety Report 21304350 (Version 1)
Quarter: 2022Q3

REPORT INFORMATION
  Report Type: Spontaneous
  Country: US (occurrence: None)
  Receive Date: 20220907
  Receipt Date: 20220907
  Transmission Date: 20221027
  Serious: No
  Sender: FDA-Public Use
  Company Number: US-ARIS GLOBAL-202107-1295

PATIENT
  Sex: Female

DRUGS (6)
  1. OXERVATE [Suspect]
     Active Substance: CENEGERMIN-BKBJ
     Indication: Neurotrophic keratopathy
     Route: 047
     Dates: start: 20210723, end: 20210915
  2. OXERVATE [Suspect]
     Active Substance: CENEGERMIN-BKBJ
     Route: 047
     Dates: start: 20220502
  3. CYANOCOBALAMIN [Concomitant]
     Active Substance: CYANOCOBALAMIN
  4. OMEPRAZOLE [Concomitant]
     Active Substance: OMEPRAZOLE
     Dosage: DELAYED-RELEASE
  5. LEVOTHYROXINE [Concomitant]
     Active Substance: LEVOTHYROXINE
  6. COREG [Concomitant]
     Active Substance: CARVEDILOL

REACTIONS (10)
  - Eye pain [Not Recovered/Not Resolved]
  - Accidental overdose [Unknown]
  - Product administration error [Unknown]
  - Eye irritation [Unknown]
  - Eye swelling [Unknown]
  - Lacrimation increased [Unknown]
  - Photophobia [Not Recovered/Not Resolved]
  - Scar [Unknown]
  - Asthenopia [Unknown]
  - Therapy interrupted [Unknown]
